FAERS Safety Report 4631954-6 (Version None)
Quarter: 2005Q2

REPORT INFORMATION
  Report Type: 
  Country: None (occurrence: None)
  Receive Date: 20050411
  Receipt Date: 20050330
  Transmission Date: 20051028
  Serious: Yes (Other)
  Sender: FDA-Public Use
  Company Number: 200512565US

PATIENT
  Sex: Female

DRUGS (1)
  1. KETEK [Suspect]
     Route: 048
     Dates: end: 20050328

REACTIONS (3)
  - EYE IRRITATION [None]
  - SKIN BURNING SENSATION [None]
  - VISUAL DISTURBANCE [None]
